FAERS Safety Report 23915863 (Version 1)
Quarter: 2024Q2

REPORT INFORMATION
  Report Type: Spontaneous
  Country: AT (occurrence: AT)
  Receive Date: 20240529
  Receipt Date: 20240529
  Transmission Date: 20240716
  Serious: Yes (Death)
  Sender: FDA-Public Use
  Company Number: AT-ELI_LILLY_AND_COMPANY-AT202106007060

PATIENT
  Age: 66 Year
  Sex: Female

DRUGS (4)
  1. ABEMACICLIB [Suspect]
     Active Substance: ABEMACICLIB
     Indication: Breast cancer
     Dosage: UNK UNK, EACH MORNING
     Route: 048
     Dates: start: 201907, end: 202105
  2. ABEMACICLIB [Suspect]
     Active Substance: ABEMACICLIB
     Dosage: UNK UNK, UNKNOWN (REINDUCTION AFTER DISCONTINUATION)
     Route: 065
  3. LETROZOLE [Concomitant]
     Active Substance: LETROZOLE
     Indication: Breast cancer
     Dosage: 2.5 MG, EACH MORNING
     Route: 048
     Dates: start: 201907
  4. XGEVA [Concomitant]
     Active Substance: DENOSUMAB
     Indication: Breast cancer
     Dosage: 120 MG, OTHER (D1 Q28)
     Route: 058
     Dates: start: 201907

REACTIONS (2)
  - Death [Fatal]
  - Diarrhoea [Recovering/Resolving]

NARRATIVE: CASE EVENT DATE: 20220701
